FAERS Safety Report 18279565 (Version 1)
Quarter: 2020Q3

REPORT INFORMATION
  Report Type: Spontaneous
  Country: US (occurrence: US)
  Receive Date: 20200917
  Receipt Date: 20200917
  Transmission Date: 20201103
  Serious: No
  Sender: FDA-Public Use
  Company Number: US-ADAMAS PHARMA, LLC-2020ADA01854

PATIENT
  Age: 45 Year
  Sex: Male
  Weight: 72.56 kg

DRUGS (13)
  1. GOCOVRI [Suspect]
     Active Substance: AMANTADINE
     Dosage: 274 MG, 1X/DAY EVERY NIGHT AT BEDTIME
     Route: 048
     Dates: start: 2020
  2. MAGNESIUM [Concomitant]
     Active Substance: MAGNESIUM
  3. GOCOVRI [Suspect]
     Active Substance: AMANTADINE
     Dosage: 68.5 MG, 1X/DAY AT BEDTIME
     Route: 048
     Dates: start: 20200717, end: 202007
  4. LEVOTHYROXINE. [Concomitant]
     Active Substance: LEVOTHYROXINE
     Dosage: 112 ?G, 1X/DAY
     Route: 048
  5. PRAMIPEXOLE. [Concomitant]
     Active Substance: PRAMIPEXOLE
     Dosage: 0.5 MG, 1X/DAY AT 9 PM
     Route: 048
  6. GOCOVRI [Suspect]
     Active Substance: AMANTADINE
     Dosage: 137 MG, 1X/DAY EVERY NIGHT AT BEDTIME
     Route: 048
     Dates: start: 20200424, end: 2020
  7. GOCOVRI [Suspect]
     Active Substance: AMANTADINE
     Dosage: 68.5 MG, 1X/DAY AT BEDTIME
     Route: 048
     Dates: start: 2020, end: 2020
  8. GOCOVRI [Suspect]
     Active Substance: AMANTADINE
     Indication: DYSKINESIA
     Dosage: 137 MG, 1X/DAY EVERY NIGHT AT BEDTIME
     Route: 048
     Dates: start: 20200212, end: 2020
  9. CARBIDOPA/LEVODOPA [Concomitant]
     Active Substance: CARBIDOPA\LEVODOPA
     Dosage: 0.5 TABLETS, 3X/DAY AS NEEDED
     Route: 048
  10. VITAMIN B12 [Concomitant]
     Active Substance: CYANOCOBALAMIN
  11. VITAMIN D3 [Concomitant]
     Active Substance: CHOLECALCIFEROL
  12. GOCOVRI [Suspect]
     Active Substance: AMANTADINE
     Indication: DYSKINESIA
     Dosage: 68.5 MG, 1X/DAY EVERY NIGHT AT BEDTIME
     Route: 048
     Dates: start: 20200417, end: 20200423
  13. GOCOVRI [Suspect]
     Active Substance: AMANTADINE
     Dosage: 137 MG, 1X/DAY EVERY NIGHT AT BEDTIME
     Route: 048
     Dates: start: 2020, end: 20200716

REACTIONS (4)
  - Urinary hesitation [Recovered/Resolved]
  - Urinary retention [Recovered/Resolved]
  - Nocturia [Recovered/Resolved]
  - Dizziness [Unknown]

NARRATIVE: CASE EVENT DATE: 200007
